FAERS Safety Report 4376186-4 (Version None)
Quarter: 2004Q2

REPORT INFORMATION
  Report Type: 
  Country: None (occurrence: None)
  Receive Date: 20040607
  Receipt Date: 20040524
  Transmission Date: 20050107
  Serious: Yes (Hospitalization)
  Sender: FDA-Public Use
  Company Number: 2004030732

PATIENT
  Sex: Male

DRUGS (3)
  1. DOXAZOSIN (DOXAZOSIN) [Suspect]
     Indication: BENIGN PROSTATIC HYPERPLASIA
     Dosage: 4 MG (4 MG, 1 IN 1 D) , ORAL
     Route: 048
     Dates: start: 20020201
  2. LOSARTAN POTASSIUM [Concomitant]
  3. PROPATYLNITRATE [Concomitant]

REACTIONS (3)
  - POST PROCEDURAL COMPLICATION [None]
  - PROSTATIC OPERATION [None]
  - URETHRITIS [None]
